FAERS Safety Report 6962843-X (Version None)
Quarter: 2010Q3

REPORT INFORMATION
  Report Type: 
  Country: None (occurrence: None)
  Receive Date: 20100831
  Receipt Date: 20100816
  Transmission Date: 20110219
  Serious: Yes (Other)
  Sender: FDA-Public Use
  Company Number: ACO_01836_2010

PATIENT
  Age: 50 Year
  Sex: Male
  Weight: 97.5234 kg

DRUGS (3)
  1. AMPYRA [Suspect]
     Indication: MULTIPLE SCLEROSIS
     Dosage: 10 MG BID ORAL
     Route: 048
     Dates: start: 20100715, end: 20100805
  2. AMPYRA [Suspect]
     Indication: MULTIPLE SCLEROSIS
     Dosage: 10 MG BID ORAL
     Route: 048
     Dates: start: 20100816
  3. AMITIZA [Suspect]
     Indication: COLITIS
     Dosage: 20 UG BID
     Dates: start: 20100626, end: 20100805

REACTIONS (4)
  - MONOPLEGIA [None]
  - NEPHROLITHIASIS [None]
  - RENAL PAIN [None]
  - WAIST CIRCUMFERENCE INCREASED [None]
